FAERS Safety Report 9418943 (Version 1)
Quarter: 2013Q3

REPORT INFORMATION
  Report Type: Spontaneous
  Country: US (occurrence: None)
  Receive Date: 20130722
  Receipt Date: 20130722
  Transmission Date: 20140515
  Serious: Yes (Life-Threatening, Hospitalization)
  Sender: FDA-Public Use
  Company Number: None

PATIENT
  Age: 57 Year
  Sex: Female

DRUGS (3)
  1. FLAGYL [Suspect]
     Route: 042
     Dates: start: 20130414
  2. CLINDAMYCINE AND DAPTOMYCIN [Concomitant]
  3. VANCOMYCIN AND CEFTAZIDIME [Concomitant]

REACTIONS (3)
  - Stevens-Johnson syndrome [None]
  - Documented hypersensitivity to administered drug [None]
  - Toxic epidermal necrolysis [None]
